FAERS Safety Report 17904192 (Version 1)
Quarter: 2020Q2

REPORT INFORMATION
  Report Type: Spontaneous
  Country: IT (occurrence: IT)
  Receive Date: 20200616
  Receipt Date: 20200616
  Transmission Date: 20200714
  Serious: Yes (Other)
  Sender: FDA-Public Use
  Company Number: IT-BAUSCH-BL-2020-017233

PATIENT
  Age: 59 Year
  Sex: Male

DRUGS (1)
  1. RIFACOL [Suspect]
     Active Substance: RIFAXIMIN
     Indication: DYSBIOSIS
     Route: 048
     Dates: start: 20200513, end: 20200523

REACTIONS (2)
  - Haemorrhage [Recovering/Resolving]
  - Rectal haemorrhage [Recovering/Resolving]

NARRATIVE: CASE EVENT DATE: 20200513
